FAERS Safety Report 5396872-7 (Version None)
Quarter: 2007Q3

REPORT INFORMATION
  Report Type: 
  Country: None (occurrence: None)
  Receive Date: 20070723
  Receipt Date: 20070706
  Transmission Date: 20080115
  Serious: Yes (Other)
  Sender: FDA-Public Use
  Company Number: 2007PL000022

PATIENT
  Age: 38 Year
  Sex: Male

DRUGS (5)
  1. IMURAN [Suspect]
     Indication: CROHN'S DISEASE
     Dosage: 150 MG;QD;PO
     Route: 048
     Dates: start: 20050304
  2. ACETAMINOPHEN [Concomitant]
  3. CYANOCOBALAMIN [Concomitant]
  4. BUDESONIDE [Concomitant]
  5. ACETAMINOPHEN W/ CODEINE [Concomitant]

REACTIONS (2)
  - MEDIASTINAL MASS [None]
  - NON-HODGKIN'S LYMPHOMA STAGE II [None]
